FAERS Safety Report 19466630 (Version 1)
Quarter: 2021Q2

REPORT INFORMATION
  Report Type: Spontaneous
  Country: CN (occurrence: CN)
  Receive Date: 20210628
  Receipt Date: 20210628
  Transmission Date: 20210717
  Serious: Yes (Death, Hospitalization, Other)
  Sender: FDA-Public Use
  Company Number: CN-JIANGSU HENGRUI MEDICINE CO., LTD.-2113165

PATIENT
  Age: 46 Year
  Sex: Male

DRUGS (7)
  1. CYCLOPHOSPHAMIDE FOR INJECTION USP, 500 MG, 1 G AND 2 G PER SINGLE?DOS [Suspect]
     Active Substance: CYCLOPHOSPHAMIDE
     Indication: HODGKIN^S DISEASE
     Route: 041
  2. EPIRUBICIN [Concomitant]
     Active Substance: EPIRUBICIN
     Route: 041
     Dates: start: 20170311
  3. PREDNISONE. [Concomitant]
     Active Substance: PREDNISONE
     Route: 048
     Dates: start: 20170721
  4. VINDESINE [Concomitant]
     Active Substance: VINDESINE
     Route: 041
     Dates: start: 20170311
  5. ETOPOSIDE. [Concomitant]
     Active Substance: ETOPOSIDE
     Route: 041
     Dates: start: 20170721
  6. DACARBAZINE. [Concomitant]
     Active Substance: DACARBAZINE
     Route: 041
     Dates: start: 20170711
  7. PINGYANGMYCIN [Suspect]
     Active Substance: BLEOMYCIN A5
     Route: 041
     Dates: start: 20170311

REACTIONS (1)
  - Interstitial lung disease [Fatal]

NARRATIVE: CASE EVENT DATE: 20170615
